FAERS Safety Report 25084671 (Version 1)
Quarter: 2025Q1

REPORT INFORMATION
  Report Type: Spontaneous
  Country: AT (occurrence: AT)
  Receive Date: 20250317
  Receipt Date: 20250317
  Transmission Date: 20250409
  Serious: Yes (Other)
  Sender: FRESENIUS KABI
  Company Number: None

PATIENT
  Age: 69 Year
  Sex: Male

DRUGS (5)
  1. ROCURONIUM BROMIDE [Suspect]
     Active Substance: ROCURONIUM BROMIDE
     Indication: General anaesthesia
     Route: 042
     Dates: start: 20241218
  2. PROPOFOL [Concomitant]
     Active Substance: PROPOFOL
     Indication: General anaesthesia
     Route: 042
     Dates: start: 20241218
  3. FENTANYL [Concomitant]
     Active Substance: FENTANYL
     Indication: General anaesthesia
     Route: 042
     Dates: start: 20241218
  4. ULTIVA [Concomitant]
     Active Substance: REMIFENTANIL HYDROCHLORIDE
     Indication: General anaesthesia
     Route: 042
     Dates: start: 20241218
  5. ROCURONIUM BROMIDE [Concomitant]
     Active Substance: ROCURONIUM BROMIDE
     Indication: General anaesthesia
     Route: 042
     Dates: start: 20241218

REACTIONS (2)
  - Anaphylactic reaction [Recovered/Resolved]
  - Hypotension [Recovered/Resolved]

NARRATIVE: CASE EVENT DATE: 20241218
